FAERS Safety Report 7057646-4 (Version None)
Quarter: 2010Q4

REPORT INFORMATION
  Report Type: 
  Country: None (occurrence: None)
  Receive Date: 20101022
  Receipt Date: 20101014
  Transmission Date: 20110411
  Serious: Yes (Hospitalization, Other)
  Sender: FDA-Public Use
  Company Number: US-ROCHE-734437

PATIENT
  Sex: Male

DRUGS (4)
  1. PEGINTERFERON ALFA-2A [Suspect]
     Indication: HEPATITIS C
     Dosage: FORM: PFS
     Route: 065
     Dates: start: 20100205
  2. PEGINTERFERON ALFA-2A [Suspect]
     Route: 065
     Dates: start: 20100924
  3. RIBASPHERE [Suspect]
     Indication: HEPATITIS C
     Dosage: DIVIDED DOSES
     Route: 065
     Dates: start: 20100205
  4. RIBASPHERE [Suspect]
     Dosage: DIVIDED DOSES
     Route: 065
     Dates: start: 20100924

REACTIONS (4)
  - GASTRIC ULCER HAEMORRHAGE [None]
  - HAEMORRHAGE [None]
  - HERNIA [None]
  - VOMITING [None]
